FAERS Safety Report 10060271 (Version 1)
Quarter: 2014Q2

REPORT INFORMATION
  Report Type: Spontaneous
  Country: GB (occurrence: GB)
  Receive Date: 20140404
  Receipt Date: 20140404
  Transmission Date: 20141212
  Serious: Yes (Other)
  Sender: FDA-Public Use
  Company Number: PHHY2014GB036811

PATIENT
  Age: 45 Year
  Sex: Female
  Weight: 96.61 kg

DRUGS (5)
  1. MIRTAZAPINE [Suspect]
     Indication: ANXIETY
     Dosage: 30 MG, UNK
     Route: 048
     Dates: start: 20140226
  2. LEVOTHYROXINE [Concomitant]
  3. DIAZEPAM [Concomitant]
  4. OMEPRAZOLE [Concomitant]
  5. SERTRALINE [Concomitant]

REACTIONS (4)
  - Anger [Unknown]
  - Disturbance in attention [Unknown]
  - Aggression [Unknown]
  - Weight increased [Unknown]
